FAERS Safety Report 13561796 (Version 2)
Quarter: 2017Q2

REPORT INFORMATION
  Report Type: Spontaneous
  Country: IE (occurrence: IE)
  Receive Date: 20170518
  Receipt Date: 20170524
  Transmission Date: 20170830
  Serious: Yes (Hospitalization, Other)
  Sender: FDA-Public Use
  Company Number: IE-BAUSCH-BL-2017-016104

PATIENT
  Age: 60 Year
  Sex: Male

DRUGS (5)
  1. FLUOXETINE [Concomitant]
     Active Substance: FLUOXETINE HYDROCHLORIDE
     Indication: PRODUCT USED FOR UNKNOWN INDICATION
  2. ATORVASTATIN [Concomitant]
     Active Substance: ATORVASTATIN
     Indication: PRODUCT USED FOR UNKNOWN INDICATION
  3. DICLOFENAC [Suspect]
     Active Substance: DICLOFENAC
     Indication: OSTEOARTHRITIS
     Dosage: INTERMITTENTLY
     Route: 065
  4. LISINOPRIL/HYDROCHLOROTHIAZIDE 20 MG/12.5 MG [Concomitant]
     Indication: PRODUCT USED FOR UNKNOWN INDICATION
  5. IBUPROFEN. [Suspect]
     Active Substance: IBUPROFEN
     Indication: PRODUCT USED FOR UNKNOWN INDICATION
     Dosage: INTERMITTENTLY
     Route: 065

REACTIONS (8)
  - Diaphragmatic disorder [Recovering/Resolving]
  - Ileal stenosis [Recovering/Resolving]
  - Inflammatory bowel disease [Recovering/Resolving]
  - Intestinal obstruction [Recovering/Resolving]
  - Acute kidney injury [Recovering/Resolving]
  - Duodenal ulcer perforation [Recovering/Resolving]
  - Gastritis [Recovering/Resolving]
  - Iron deficiency anaemia [Recovering/Resolving]

NARRATIVE: CASE EVENT DATE: 2011
